FAERS Safety Report 9260356 (Version 2)
Quarter: 2013Q3

REPORT INFORMATION
  Report Type: Spontaneous
  Country: US (occurrence: US)
  Receive Date: 20130429
  Receipt Date: 20130913
  Transmission Date: 20140515
  Serious: No
  Sender: FDA-Public Use
  Company Number: US-B.I. PHARMACEUTICALS,INC./RIDGEFIELD-2013-BI-08750BP

PATIENT
  Age: 84 Year
  Sex: Male
  Weight: 60.33 kg

DRUGS (10)
  1. PRADAXA [Suspect]
     Indication: ATRIAL FIBRILLATION
     Dosage: 150 MG
     Route: 048
     Dates: start: 20120418, end: 20120424
  2. SIMVASTATIN [Concomitant]
     Dosage: 10 MG
     Dates: start: 2000
  3. LASIX [Concomitant]
     Dosage: 40 MG
     Route: 048
  4. ASPIRIN [Concomitant]
     Dosage: 81 MG
  5. NIASPAN [Concomitant]
     Dates: start: 1998
  6. SYNTHROID [Concomitant]
     Dosage: 0.175 MG
  7. GLIPIZIDE [Concomitant]
     Dosage: 10 MG
  8. TAMSULOSIN HYDROCHLORIDE [Concomitant]
     Dosage: 0.4 MG
     Dates: start: 1996
  9. ONGLYZA [Concomitant]
     Dosage: 2.5 MG
     Dates: start: 2000
  10. TOPROL XL [Concomitant]
     Dosage: 50 MG
     Dates: start: 1996

REACTIONS (4)
  - Epistaxis [Recovered/Resolved]
  - Coagulopathy [Unknown]
  - Anaemia [Unknown]
  - Epistaxis [Recovered/Resolved]
